FAERS Safety Report 8408461-8 (Version None)
Quarter: 2012Q2

REPORT INFORMATION
  Report Type: 
  Country: None (occurrence: None)
  Receive Date: 20120323
  Receipt Date: 20111220
  Transmission Date: 20120825
  Serious: Yes (Hospitalization)
  Sender: FDA-Public Use
  Company Number: 163-21880-11122591

PATIENT
  Age: 73 Year
  Sex: Male
  Weight: 96.1626 kg

DRUGS (3)
  1. REVLIMID [Suspect]
     Indication: MULTIPLE MYELOMA
     Dosage: 15 MG, 1 IN 1 D, PO : 10 MG, 1 IN 1 D, PO
     Route: 048
     Dates: start: 20110301
  2. REVLIMID [Suspect]
     Indication: MULTIPLE MYELOMA
     Dosage: 15 MG, 1 IN 1 D, PO : 10 MG, 1 IN 1 D, PO
     Route: 048
     Dates: start: 20111201, end: 20110101
  3. ASPIRIN [Concomitant]

REACTIONS (1)
  - CARDIAC FAILURE [None]
